FAERS Safety Report 17404805 (Version 1)
Quarter: 2020Q1

REPORT INFORMATION
  Report Type: Spontaneous
  Country: US (occurrence: US)
  Receive Date: 20200211
  Receipt Date: 20200211
  Transmission Date: 20200409
  Serious: No
  Sender: FDA-Public Use
  Company Number: US-PRINSTON PHARMACEUTICAL INC.-2019PRN00466

PATIENT
  Age: 78 Year
  Sex: Female
  Weight: 72.56 kg

DRUGS (7)
  1. BENAZEPRIL HYDROCHLORIDE. [Suspect]
     Active Substance: BENAZEPRIL HYDROCHLORIDE
     Indication: HYPERTENSION
     Dosage: 40 MG, 1X/DAY
     Route: 048
     Dates: start: 20190308
  2. XARELTO [Suspect]
     Active Substance: RIVAROXABAN
  3. LOTRISONE [Suspect]
     Active Substance: BETAMETHASONE DIPROPIONATE\CLOTRIMAZOLE
  4. LASIX [Suspect]
     Active Substance: FUROSEMIDE
  5. POTASSIUM CHLORIDE. [Suspect]
     Active Substance: POTASSIUM CHLORIDE
  6. METOPROLOL SUCCINATE. [Suspect]
     Active Substance: METOPROLOL SUCCINATE
  7. LORAZEPAM. [Suspect]
     Active Substance: LORAZEPAM

REACTIONS (2)
  - Reaction to excipient [Not Recovered/Not Resolved]
  - Rash [Not Recovered/Not Resolved]

NARRATIVE: CASE EVENT DATE: 201903
